FAERS Safety Report 10494992 (Version 2)
Quarter: 2014Q4

REPORT INFORMATION
  Report Type: Spontaneous
  Country: US (occurrence: US)
  Receive Date: 20141003
  Receipt Date: 20141003
  Transmission Date: 20150528
  Serious: Yes (Hospitalization)
  Sender: FDA-Public Use
  Company Number: US-UNITED THERAPEUTICS-UTC-046429

PATIENT
  Age: 69 Year
  Sex: Female
  Weight: 73.2 kg

DRUGS (2)
  1. REVATIO [Concomitant]
     Active Substance: SILDENAFIL CITRATE
  2. REMODULIN [Suspect]
     Active Substance: TREPROSTINIL
     Route: 041
     Dates: start: 20130312

REACTIONS (4)
  - Ascites [Unknown]
  - Atrial fibrillation [Unknown]
  - Fluid retention [Unknown]
  - Anaemia [Unknown]

NARRATIVE: CASE EVENT DATE: 201403
